FAERS Safety Report 9917660 (Version 1)
Quarter: 2014Q1

REPORT INFORMATION
  Report Type: Spontaneous
  Country: US (occurrence: US)
  Receive Date: 20140221
  Receipt Date: 20140221
  Transmission Date: 20141002
  Serious: No
  Sender: FDA-Public Use
  Company Number: US-ENDO PHARMACEUTICALS INC.-PREV20130017

PATIENT
  Age: 48 Year
  Sex: Female

DRUGS (3)
  1. PREVIFEM [Suspect]
     Indication: ENDOMETRIAL DISORDER
     Dosage: 1 TABLET
     Route: 048
     Dates: start: 201303, end: 201306
  2. CYCLAFEM 1/35 TABLETS [Concomitant]
     Indication: ENDOMETRIAL DISORDER
     Dosage: 1 TABLET
     Route: 048
     Dates: start: 201306
  3. CYCLAFEM 1/35 TABLETS [Concomitant]
     Dosage: 1 TABLET
     Route: 048
     Dates: start: 2012, end: 201303

REACTIONS (2)
  - Vaginal polyp [Recovered/Resolved]
  - Metrorrhagia [Not Recovered/Not Resolved]
